FAERS Safety Report 6442577-0 (Version None)
Quarter: 2009Q4

REPORT INFORMATION
  Report Type: 
  Country: None (occurrence: None)
  Receive Date: 20091117
  Receipt Date: 20091112
  Transmission Date: 20100525
  Serious: Yes (Hospitalization)
  Sender: FDA-Public Use
  Company Number: US-ALLERGAN-0915704US

PATIENT
  Age: 66 Year
  Sex: Female

DRUGS (9)
  1. BOTOX COSMETIC [Suspect]
     Indication: SKIN WRINKLING
     Dosage: 27 UNITS, SINGLE
     Route: 030
     Dates: start: 20090831, end: 20090831
  2. LEVOTHROID [Concomitant]
     Dosage: UNK
  3. SERTRALINE HCL [Concomitant]
     Dosage: UNK
  4. XANAX [Concomitant]
     Dosage: UNK
  5. TOPROL-XL [Concomitant]
     Dosage: UNK
  6. PRAVASTATIN [Concomitant]
     Dosage: UNK
  7. PERCOCET [Concomitant]
     Dosage: UNK
  8. MULTI-VITAMINS [Concomitant]
     Dosage: UNK
  9. NATURAL TEARS [Concomitant]
     Dosage: UNK

REACTIONS (5)
  - EYELID PTOSIS [None]
  - FACIAL PAIN [None]
  - KIDNEY INFECTION [None]
  - SEPSIS SYNDROME [None]
  - URINARY TRACT INFECTION [None]
